FAERS Safety Report 5035359-8 (Version None)
Quarter: 2006Q2

REPORT INFORMATION
  Report Type: 
  Country: None (occurrence: None)
  Receive Date: 20060627
  Receipt Date: 20060324
  Transmission Date: 20061013
  Serious: Yes (Other)
  Sender: FDA-Public Use
  Company Number: IT-AVENTIS-200613027GDDC

PATIENT
  Age: 70 Year
  Sex: Female
  Weight: 80 kg

DRUGS (6)
  1. ARAVA [Suspect]
     Indication: RHEUMATOID ARTHRITIS
     Route: 048
     Dates: start: 20051201, end: 20060301
  2. PRAVASTATIN [Concomitant]
     Dosage: DOSE: UNK
  3. NEBIVOLOL HCL [Concomitant]
     Dosage: DOSE: UNK
  4. METHYLPREDNISOLONE [Concomitant]
     Indication: RHEUMATOID ARTHRITIS
     Route: 048
  5. LOSARTAN [Concomitant]
     Dosage: DOSE: UNK
  6. ALENDRONATE SODIUM [Concomitant]
     Dosage: DOSE: UNK

REACTIONS (6)
  - BLOOD BILIRUBIN INCREASED [None]
  - DYSPEPSIA [None]
  - HEPATITIS VIRAL [None]
  - JAUNDICE [None]
  - TRANSAMINASES INCREASED [None]
  - VOMITING [None]
